FAERS Safety Report 12862053 (Version 1)
Quarter: 2016Q4

REPORT INFORMATION
  Report Type: Spontaneous
  Country: RU (occurrence: RU)
  Receive Date: 20161019
  Receipt Date: 20161019
  Transmission Date: 20170207
  Serious: Yes (Death)
  Sender: FDA-Public Use
  Company Number: RU-ASTRAZENECA-2016SF08869

PATIENT
  Age: 76 Year
  Sex: Female
  Weight: 90 kg

DRUGS (3)
  1. ENAP [Concomitant]
     Active Substance: ENALAPRIL
  2. TRENTAL [Concomitant]
     Active Substance: PENTOXIFYLLINE
  3. CRESTOR [Suspect]
     Active Substance: ROSUVASTATIN CALCIUM
     Indication: ARTERIOSCLEROSIS
     Route: 048
     Dates: start: 20160115, end: 20160309

REACTIONS (1)
  - Cerebrovascular accident [Fatal]

NARRATIVE: CASE EVENT DATE: 20160309
